FAERS Safety Report 9336728 (Version 2)
Quarter: 2013Q2

REPORT INFORMATION
  Report Type: Report from Study
  Country: CA (occurrence: CA)
  Receive Date: 20130607
  Receipt Date: 20130620
  Transmission Date: 20140414
  Serious: Yes (Death)
  Sender: FDA-Public Use
  Company Number: PHHY2013CA057540

PATIENT
  Sex: Male

DRUGS (1)
  1. CLOZARIL [Suspect]
     Dosage: UNK
     Dates: start: 20121221

REACTIONS (3)
  - Type 2 diabetes mellitus [Fatal]
  - Chronic obstructive pulmonary disease [Fatal]
  - Myocardial ischaemia [Fatal]
